FAERS Safety Report 9587544 (Version 2)
Quarter: 2013Q4

REPORT INFORMATION
  Report Type: Spontaneous
  Country: US (occurrence: US)
  Receive Date: 20131003
  Receipt Date: 20131021
  Transmission Date: 20140711
  Serious: Yes (Other)
  Sender: FDA-Public Use
  Company Number: US-PFIZER INC-2013280274

PATIENT
  Age: 73 Year
  Sex: Female
  Weight: 53.06 kg

DRUGS (20)
  1. LYRICA [Suspect]
     Indication: POLYNEUROPATHY
     Dosage: 50 MG, 1X/DAY (AT NIGHT)
  2. FOSAMAX [Concomitant]
     Dosage: 70 MG, WEEKLY (ON SAME DAY EACH WEEK,TAKE IN MORNING W/6-8 OZ WATER,ON AN EMPTY STOMACH)
     Route: 048
  3. ALENDRONATE ORAL [Concomitant]
     Dosage: 70 MG, UNK
     Route: 048
  4. ELAVIL [Concomitant]
     Dosage: 10 MG, 1X/DAY (AT BEDTIME)
     Route: 048
  5. AMITRIPTYLINE ORAL [Concomitant]
     Dosage: UNK
     Route: 048
  6. STANBACK ORAL [Concomitant]
     Dosage: UNK
     Route: 048
  7. ATENOLOL W/CHLORTALIDONE [Concomitant]
     Dosage: UNK
     Route: 048
  8. CLONAZEPAM [Concomitant]
     Dosage: UNK
     Route: 048
  9. CYMBALTA [Concomitant]
     Dosage: 30 MG, DAILY
     Route: 048
  10. LOVENOX [Concomitant]
     Dosage: 40 MG, 1X/DAY (DAILY AT THE SAME TIME EACH DAY)
     Route: 058
  11. NEURONTIN [Concomitant]
     Dosage: 300 MG, 3X/DAY
     Route: 048
  12. KEPPRA [Concomitant]
     Dosage: 500 MG, 2X/DAY
     Route: 048
  13. LEVOXYL ORAL [Concomitant]
     Dosage: UNK
     Route: 048
  14. LOPRESSOR [Concomitant]
     Dosage: 50 MG, 2X/DAY
     Route: 048
  15. AVINZA [Concomitant]
     Dosage: 60 MG, DAILY
     Route: 048
  16. MORPHINE SULFATE ER [Concomitant]
     Dosage: 60 MG, UNK
  17. PROTONIX DR [Concomitant]
     Dosage: 40 MG, DAILY
     Route: 048
  18. PHENERGAN [Concomitant]
     Dosage: 25 MG, (EVERY SIX(6) HOURS AS NEEDED)
     Route: 048
  19. PROMETHAZINE [Concomitant]
     Dosage: 6.25 MG, 4X/DAY (6.25 MG BY MOUTH EVERY SIX (6) HOURS AS)
     Route: 048
  20. TRAZODONE [Concomitant]
     Dosage: 100 MG, EVERY NIGHT AT BEDTIME (QHS)

REACTIONS (4)
  - Polyneuropathy [Unknown]
  - Back pain [Recovered/Resolved]
  - Pain in extremity [Recovered/Resolved]
  - Decreased vibratory sense [Unknown]
